FAERS Safety Report 4772490-6 (Version None)
Quarter: 2005Q3

REPORT INFORMATION
  Report Type: 
  Country: None (occurrence: None)
  Receive Date: 20050914
  Receipt Date: 20041118
  Transmission Date: 20060218
  Serious: Yes (Hospitalization)
  Sender: FDA-Public Use
  Company Number: 163-20785-04110442

PATIENT
  Age: 48 Year
  Sex: Female

DRUGS (10)
  1. THALOMID [Suspect]
     Indication: SYSTEMIC LUPUS ERYTHEMATOSUS
     Dosage: 50 MG, QD, ORAL;  DAILY, ORAL
     Route: 048
     Dates: start: 20040821, end: 20041103
  2. THALOMID [Suspect]
     Indication: SYSTEMIC LUPUS ERYTHEMATOSUS
     Dosage: 50 MG, QD, ORAL;  DAILY, ORAL
     Route: 048
     Dates: start: 20041109
  3. PREDNISONE [Concomitant]
  4. PLAQUENIL [Concomitant]
  5. ELAVIL [Concomitant]
  6. ATIVAN [Concomitant]
  7. PREMARIN [Concomitant]
  8. PAXIL [Concomitant]
  9. NORVASC [Concomitant]
  10. DILANTIN [Concomitant]

REACTIONS (4)
  - HYPOTENSION [None]
  - INFECTED CYST [None]
  - PYREXIA [None]
  - SEPSIS [None]
